FAERS Safety Report 7479008-8 (Version None)
Quarter: 2011Q2

REPORT INFORMATION
  Report Type: 
  Country: None (occurrence: None)
  Receive Date: 20110504
  Receipt Date: 20110425
  Transmission Date: 20111010
  Serious: Yes (Other)
  Sender: FDA-Public Use
  Company Number: PD 146

PATIENT
  Age: 35 Year
  Sex: Male

DRUGS (9)
  1. DAPSONE [Concomitant]
  2. TRUVADE (EMTRICITABINE-TENOFOVIR) [Concomitant]
  3. CLARITHROMYCIN [Concomitant]
  4. LEVETIRACETAM [Suspect]
     Indication: EPILEPSY
  5. RIFABUTIN [Concomitant]
  6. SERTRALINE HYDROCHLORIDE [Concomitant]
  7. CLONAZEPAM [Concomitant]
  8. RITONAVIR [Concomitant]
  9. ATAZANAVIR [Concomitant]

REACTIONS (5)
  - HAEMATURIA [None]
  - ANAEMIA [None]
  - PETECHIAE [None]
  - MELAENA [None]
  - THROMBOCYTOPENIA [None]
